FAERS Safety Report 21499581 (Version 1)
Quarter: 2022Q4

REPORT INFORMATION
  Report Type: Spontaneous
  Country: US (occurrence: None)
  Receive Date: 20221024
  Receipt Date: 20221024
  Transmission Date: 20230113
  Serious: Yes (Other)
  Sender: FDA-Public Use
  Company Number: None

PATIENT
  Age: 42 Year
  Sex: Female
  Weight: 74 kg

DRUGS (9)
  1. VENOFER [Suspect]
     Active Substance: IRON SUCROSE
     Indication: Iron deficiency anaemia
     Dosage: FREQUENCY : ONCE;?
     Route: 042
     Dates: start: 20221020, end: 20221020
  2. PANTOPRAZOLE [Concomitant]
     Active Substance: PANTOPRAZOLE
  3. DESVENLAFAXINE [Concomitant]
     Active Substance: DESVENLAFAXINE
  4. ATENOLOL [Concomitant]
     Active Substance: ATENOLOL
  5. FLUTICASONE [Concomitant]
     Active Substance: FLUTICASONE
  6. AZELASTINE [Concomitant]
     Active Substance: AZELASTINE
  7. Olopatadine Ophthalmic [Concomitant]
  8. FEXOFENADINE [Concomitant]
     Active Substance: FEXOFENADINE HYDROCHLORIDE
  9. ALBUTEROL [Concomitant]
     Active Substance: ALBUTEROL

REACTIONS (10)
  - Chest discomfort [None]
  - Gastrooesophageal reflux disease [None]
  - Infusion related reaction [None]
  - Gait disturbance [None]
  - Peripheral swelling [None]
  - Peripheral swelling [None]
  - Loss of consciousness [None]
  - Urticaria [None]
  - Dysuria [None]
  - Peripheral swelling [None]

NARRATIVE: CASE EVENT DATE: 20221020
